FAERS Safety Report 9770741 (Version 1)
Quarter: 2013Q4

REPORT INFORMATION
  Report Type: Spontaneous
  Country: US (occurrence: US)
  Receive Date: 20131218
  Receipt Date: 20131218
  Transmission Date: 20140711
  Serious: No
  Sender: FDA-Public Use
  Company Number: US-BAYER-2013-154758

PATIENT
  Age: 43 Year
  Sex: Female
  Weight: 53.06 kg

DRUGS (3)
  1. ULTRAVIST [Suspect]
     Indication: ANGIOGRAM
     Dosage: 370 MG/ML, ONCE
     Route: 042
     Dates: start: 20081203, end: 20081203
  2. ULTRAVIST [Suspect]
     Indication: CHEST PAIN
  3. PREDNISONE [Concomitant]
     Indication: PREMEDICATION

REACTIONS (2)
  - Rash [Recovered/Resolved]
  - Pruritus [Recovered/Resolved]
